FAERS Safety Report 6196085-5 (Version None)
Quarter: 2009Q2

REPORT INFORMATION
  Report Type: 
  Country: None (occurrence: None)
  Receive Date: 20090520
  Receipt Date: 20090511
  Transmission Date: 20091009
  Serious: Yes (Other)
  Sender: FDA-Public Use
  Company Number: IN-TYCO HEALTHCARE/MALLINCKRODT-T200901019

PATIENT
  Age: 32 Year
  Sex: Male

DRUGS (7)
  1. TRAMADOL HCL [Suspect]
     Indication: PAIN
  2. TRAMADOL HCL [Suspect]
     Indication: ARTHRALGIA
  3. CETRIZINE [Suspect]
     Indication: HYPERSENSITIVITY
  4. ALBENDAZOLE [Concomitant]
     Indication: TAENIASIS
  5. PHENYTOIN [Concomitant]
     Indication: TAENIASIS
  6. RANITIDINE [Concomitant]
     Indication: TAENIASIS
  7. STEROIDS [Concomitant]
     Indication: TAENIASIS

REACTIONS (4)
  - AGGRESSION [None]
  - DELIRIUM [None]
  - HYPERHIDROSIS [None]
  - TACHYCARDIA [None]
